FAERS Safety Report 20278913 (Version 2)
Quarter: 2022Q1

REPORT INFORMATION
  Report Type: Report from Study
  Country: FR (occurrence: FR)
  Receive Date: 20220103
  Receipt Date: 20220110
  Transmission Date: 20220423
  Serious: Yes (Death, Other)
  Sender: FDA-Public Use
  Company Number: FR-NOVARTISPH-NVSC2021FR299819

PATIENT
  Sex: Female
  Weight: 89 kg

DRUGS (5)
  1. TRAMETINIB [Suspect]
     Active Substance: TRAMETINIB
     Indication: Metastatic malignant melanoma
     Dosage: 2 MG, QOD
     Route: 048
     Dates: start: 20210702, end: 20211125
  2. DABRAFENIB [Suspect]
     Active Substance: DABRAFENIB
     Indication: Metastatic malignant melanoma
     Dosage: 150 MG, BID
     Route: 048
     Dates: start: 20210702, end: 20211125
  3. VERAPAMIL HYDROCHLORIDE [Concomitant]
     Active Substance: VERAPAMIL HYDROCHLORIDE
     Indication: Product used for unknown indication
     Dosage: 10 MG, QD
     Route: 065
     Dates: start: 20211126, end: 20211210
  4. SOLU-MEDROL [Concomitant]
     Active Substance: METHYLPREDNISOLONE SODIUM SUCCINATE
     Indication: Product used for unknown indication
     Dosage: 120 MG, TID
     Route: 065
     Dates: start: 20211126, end: 20211210
  5. KEPPRA [Concomitant]
     Active Substance: LEVETIRACETAM
     Indication: Product used for unknown indication
     Dosage: 500 MG, BID
     Route: 065
     Dates: start: 20211126, end: 20211210

REACTIONS (4)
  - Metastases to central nervous system [Fatal]
  - Malignant melanoma [Unknown]
  - Malignant neoplasm progression [Unknown]
  - Drug ineffective [Unknown]

NARRATIVE: CASE EVENT DATE: 20211201
